FAERS Safety Report 4927442-X (Version None)
Quarter: 2006Q1

REPORT INFORMATION
  Report Type: 
  Country: None (occurrence: None)
  Receive Date: 20060228
  Receipt Date: 20060221
  Transmission Date: 20060701
  Serious: Yes (Other)
  Sender: FDA-Public Use
  Company Number: JP-JNJFOC-20060104116

PATIENT
  Sex: Male
  Weight: 59 kg

DRUGS (16)
  1. REMICADE [Suspect]
     Route: 042
  2. REMICADE [Suspect]
     Route: 042
  3. REMICADE [Suspect]
     Route: 042
  4. REMICADE [Suspect]
     Route: 042
  5. REMICADE [Suspect]
     Indication: RHEUMATOID ARTHRITIS
     Route: 042
  6. PREDNISOLONE [Suspect]
     Indication: RHEUMATOID ARTHRITIS
     Route: 048
  7. RHEUMATREX [Concomitant]
     Indication: RHEUMATOID ARTHRITIS
     Route: 048
  8. ISONIAZID [Concomitant]
     Indication: ANTIBIOTIC PROPHYLAXIS
     Route: 048
  9. ADRENAL HORMONE PREPARATIONS [Concomitant]
     Indication: RHEUMATOID ARTHRITIS
  10. HYPEN [Concomitant]
     Indication: RHEUMATOID ARTHRITIS
     Route: 048
  11. CYTOTEC [Concomitant]
     Route: 048
  12. EUGLUCON [Concomitant]
     Route: 048
  13. GLUCOBAY [Concomitant]
     Route: 048
  14. NORVASC [Concomitant]
     Route: 048
  15. CARDENALIN [Concomitant]
     Route: 048
  16. PARIET [Concomitant]
     Route: 048

REACTIONS (1)
  - CHORIORETINOPATHY [None]
